FAERS Safety Report 8402022 (Version 2)
Quarter: 2013Q2

REPORT INFORMATION
  Report Type: Spontaneous
  Country: US (occurrence: None)
  Receive Date: 20111227
  Receipt Date: 20120426
  Transmission Date: 20140414
  Serious: No
  Sender: FDA-Public Use
  Company Number: PHEH2011US04618

PATIENT
  Age: 56 Year
  Sex: Male

DRUGS (1)
  1. GILENYA [Suspect]
     Indication: MULTIPLE SCLEROSIS
     Route: 048
     Dates: start: 20110908

REACTIONS (5)
  - FATIGUE [None]
  - DIARRHOEA [None]
  - DIZZINESS [None]
  - Sluggishness [None]
  - Influenza [None]
